FAERS Safety Report 19718346 (Version 1)
Quarter: 2021Q3

REPORT INFORMATION
  Report Type: Spontaneous
  Country: US (occurrence: US)
  Receive Date: 20210818
  Receipt Date: 20210818
  Transmission Date: 20211014
  Serious: Yes (Hospitalization)
  Sender: FDA-Public Use
  Company Number: None

PATIENT
  Age: 74 Year
  Sex: Female

DRUGS (6)
  1. MEKINIST [Suspect]
     Active Substance: TRAMETINIB DIMETHYL SULFOXIDE
     Indication: MALIGNANT MELANOMA IN SITU
     Route: 048
     Dates: start: 20210325
  2. TAFINLAR [Concomitant]
     Active Substance: DABRAFENIB MESYLATE
  3. TYLENOL [Concomitant]
     Active Substance: ACETAMINOPHEN
  4. XGEVA [Concomitant]
     Active Substance: DENOSUMAB
  5. CALCIUM [Concomitant]
     Active Substance: CALCIUM
  6. METFORMIN [Concomitant]
     Active Substance: METFORMIN HYDROCHLORIDE

REACTIONS (1)
  - Hospice care [None]
